FAERS Safety Report 25166195 (Version 1)
Quarter: 2025Q2

REPORT INFORMATION
  Report Type: Spontaneous
  Country: GB (occurrence: GB)
  Receive Date: 20250407
  Receipt Date: 20250407
  Transmission Date: 20250716
  Serious: Yes (Life-Threatening, Hospitalization, Other)
  Sender: TEVA
  Company Number: None

PATIENT
  Age: 29 Year
  Sex: Female
  Weight: 57 kg

DRUGS (1)
  1. MIRTAZAPINE [Suspect]
     Active Substance: MIRTAZAPINE
     Indication: Adverse drug reaction
     Dosage: 15MG ONCE AT NIGHT
     Route: 065
     Dates: start: 2024, end: 20250318

REACTIONS (21)
  - Nausea [Recovering/Resolving]
  - Abdominal pain upper [Recovering/Resolving]
  - Dissociation [Recovered/Resolved]
  - Medication error [Unknown]
  - Use of accessory respiratory muscles [Recovering/Resolving]
  - Pharyngitis [Recovering/Resolving]
  - Chest pain [Recovering/Resolving]
  - Weight increased [Not Recovered/Not Resolved]
  - Palpitations [Recovered/Resolved]
  - Autophobia [Recovering/Resolving]
  - Stomatitis [Recovering/Resolving]
  - Suicidal ideation [Unknown]
  - Back pain [Not Recovered/Not Resolved]
  - Photophobia [Not Recovered/Not Resolved]
  - Dizziness [Recovered/Resolved]
  - Increased appetite [Recovered/Resolved]
  - Mood swings [Recovering/Resolving]
  - Mouth ulceration [Recovering/Resolving]
  - Hyperhidrosis [Not Recovered/Not Resolved]
  - Vomiting [Recovered/Resolved with Sequelae]
  - Feeling of despair [Recovering/Resolving]

NARRATIVE: CASE EVENT DATE: 20240101
